FAERS Safety Report 10766593 (Version 2)
Quarter: 2015Q1

REPORT INFORMATION
  Report Type: Spontaneous
  Country: JP (occurrence: JP)
  Receive Date: 20150205
  Receipt Date: 20150316
  Transmission Date: 20150721
  Serious: Yes (Hospitalization)
  Sender: FDA-Public Use
  Company Number: JP-ASTRAZENECA-2015SE11193

PATIENT
  Age: 91 Year
  Sex: Male
  Weight: 54 kg

DRUGS (16)
  1. ZYLORIC [Concomitant]
     Active Substance: ALLOPURINOL
     Dates: end: 20141022
  2. SEROQUEL [Suspect]
     Active Substance: QUETIAPINE FUMARATE
     Indication: DELIRIUM
     Dosage: 12.5 MG AS NEEDED AND 25 MG ONCE DAILY
     Route: 048
     Dates: start: 20141028, end: 20141118
  3. METHYCOBAL [Concomitant]
     Active Substance: METHYLCOBALAMIN
     Dates: end: 20141022
  4. METOPLIC [Concomitant]
     Active Substance: METOPROLOL TARTRATE
     Dates: start: 20141026, end: 20141126
  5. FOLIAMIN [Concomitant]
     Active Substance: FOLIC ACID
     Dates: start: 20141028, end: 20141203
  6. NORVASC [Concomitant]
     Active Substance: AMLODIPINE BESYLATE
     Dates: end: 20141022
  7. ZOSYN [Concomitant]
     Active Substance: PIPERACILLIN SODIUM\TAZOBACTAM SODIUM
     Dates: start: 20141022, end: 20141104
  8. FUROSEMIDE. [Concomitant]
     Active Substance: FUROSEMIDE
     Dates: start: 20141024, end: 20141107
  9. ARTIST [Concomitant]
     Active Substance: CARVEDILOL
     Dates: end: 20141022
  10. FUROSEMIDE. [Concomitant]
     Active Substance: FUROSEMIDE
     Dates: start: 20141108, end: 20141128
  11. ALINAMIN F [Concomitant]
     Active Substance: FURSULTIAMINE HYDROCHLORIDE
     Dates: start: 20141028, end: 20141203
  12. YOKUKANSAN [Concomitant]
     Active Substance: HERBALS
     Dates: start: 20141108, end: 20141203
  13. BLOPRESS [Concomitant]
     Active Substance: CANDESARTAN CILEXETIL
     Dates: end: 20141022
  14. GLUCONSAN K [Concomitant]
     Dates: start: 20141029, end: 20150107
  15. LASIX [Concomitant]
     Active Substance: FUROSEMIDE
     Dates: end: 20141022
  16. LANSOPRAZOLE TOWA [Concomitant]
     Dates: start: 20141027, end: 20150107

REACTIONS (5)
  - Product use issue [Recovered/Resolved]
  - Tubulointerstitial nephritis [Recovered/Resolved]
  - Hepatitis C antibody positive [Unknown]
  - White blood cell count decreased [Unknown]
  - Intentional product misuse [Recovered/Resolved]

NARRATIVE: CASE EVENT DATE: 20141028
